FAERS Safety Report 19628712 (Version 1)
Quarter: 2021Q3

REPORT INFORMATION
  Report Type: Spontaneous
  Country: AT (occurrence: AT)
  Receive Date: 20210729
  Receipt Date: 20210729
  Transmission Date: 20211014
  Serious: Yes (Other)
  Sender: FDA-Public Use
  Company Number: AT-TEVA-2021-AT-1937412

PATIENT
  Sex: Male

DRUGS (1)
  1. ARIPIPRAZOL [Suspect]
     Active Substance: ARIPIPRAZOLE
     Route: 065
     Dates: start: 2013, end: 2019

REACTIONS (4)
  - Hallucination, olfactory [Unknown]
  - Tremor [Unknown]
  - Oculogyric crisis [Recovered/Resolved]
  - Sudden hearing loss [Unknown]

NARRATIVE: CASE EVENT DATE: 2013
